FAERS Safety Report 12318668 (Version 1)
Quarter: 2016Q2

REPORT INFORMATION
  Report Type: Spontaneous
  Country: US (occurrence: US)
  Receive Date: 20160429
  Receipt Date: 20160429
  Transmission Date: 20160815
  Serious: No
  Sender: FDA-Public Use
  Company Number: US-TORRENT-00001160

PATIENT
  Sex: Female

DRUGS (3)
  1. ZOLPIDEM TARTRATE TABLET [Suspect]
     Active Substance: ZOLPIDEM TARTRATE
     Indication: INSOMNIA
     Dosage: ONCE A DAY BY MOUTH
     Route: 048
     Dates: start: 201401, end: 20160104
  2. LUNESTA [Concomitant]
     Active Substance: ESZOPICLONE
     Indication: INSOMNIA
     Dosage: ONCE A DAY AT BAD TIME BY MOUTH
     Route: 048
     Dates: start: 20150717, end: 20160104
  3. TIKOSYN [Concomitant]
     Active Substance: DOFETILIDE
     Indication: CORONARY ARTERY DISEASE
     Route: 048
     Dates: start: 20150717

REACTIONS (1)
  - Drug ineffective [Unknown]
